FAERS Safety Report 8009056-0 (Version None)
Quarter: 2011Q4

REPORT INFORMATION
  Report Type: 
  Country: None (occurrence: None)
  Receive Date: 20111221
  Receipt Date: 20111212
  Transmission Date: 20120403
  Serious: Yes (Hospitalization, Other)
  Sender: FDA-Public Use
  Company Number: 2011MA017574

PATIENT

DRUGS (1)
  1. OXYCODONE HCL [Suspect]
     Indication: PREGNANCY

REACTIONS (1)
  - DRUG WITHDRAWAL SYNDROME NEONATAL [None]
